FAERS Safety Report 9156800 (Version 1)
Quarter: 2013Q1

REPORT INFORMATION
  Report Type: Spontaneous
  Country: US (occurrence: US)
  Receive Date: 20130312
  Receipt Date: 20130312
  Transmission Date: 20140127
  Serious: Yes (Hospitalization)
  Sender: FDA-Public Use
  Company Number: US-BAYER-2013-027538

PATIENT
  Age: 24 Year
  Sex: Female
  Weight: 52.15 kg

DRUGS (10)
  1. YASMIN [Suspect]
     Dosage: UNK
     Dates: start: 20050513
  2. YASMIN [Suspect]
     Dosage: UNK
     Dates: start: 20050611
  3. YASMIN [Suspect]
     Dosage: UNK
     Dates: start: 20050711
  4. YASMIN [Suspect]
     Dosage: UNK
     Dates: start: 20050805
  5. YASMIN [Suspect]
     Dosage: UNK
     Dates: start: 20050901
  6. YASMIN [Suspect]
     Dosage: UNK
     Dates: start: 20051003
  7. YASMIN [Suspect]
     Dosage: UNK
     Dates: start: 20051028
  8. YASMIN [Suspect]
     Dosage: UNK
     Dates: start: 20051126
  9. YASMIN [Suspect]
     Dosage: UNK
     Dates: start: 20051223
  10. YASMIN [Suspect]
     Dosage: UNK
     Dates: start: 20060120

REACTIONS (5)
  - Cerebrovascular accident [Recovered/Resolved]
  - Central nervous system lesion [Recovered/Resolved]
  - Aphasia [Recovered/Resolved]
  - Aphasia [Recovered/Resolved]
  - Venous injury [Recovered/Resolved]
